FAERS Safety Report 9991619 (Version 2)
Quarter: 2014Q2

REPORT INFORMATION
  Report Type: Report from Study
  Country: CZ (occurrence: CZ)
  Receive Date: 20140310
  Receipt Date: 20140519
  Transmission Date: 20141212
  Serious: Yes (Hospitalization)
  Sender: FDA-Public Use
  Company Number: CZ-VERTEX PHARMACEUTICALS INC-2014-001054

PATIENT
  Age: 13 Year
  Sex: Female

DRUGS (15)
  1. VX-809 FDC [Suspect]
     Indication: CYSTIC FIBROSIS
     Dosage: 600 MG, QD
     Dates: start: 20140227
  2. VX-770 FDC [Suspect]
     Indication: CYSTIC FIBROSIS
     Dosage: 600 MG, QAM
     Dates: start: 20140227
  3. VX-770 [Suspect]
     Indication: CYSTIC FIBROSIS
     Dosage: 250 MG, QPM
     Dates: start: 20140227
  4. KREON 25000 [Concomitant]
     Indication: PANCREATIC INSUFFICIENCY
     Dosage: 12-14 CAPSULES, QD WITH MEALS
     Dates: start: 2001
  5. VITAMIN A [Concomitant]
     Indication: PANCREATIC INSUFFICIENCY
     Dosage: 2 DF, QW
     Dates: start: 2001
  6. VIGANTOL [Concomitant]
     Indication: PANCREATIC INSUFFICIENCY
     Dosage: 2 DF, QD
     Dates: start: 2001
  7. VITAMIN B [Concomitant]
     Indication: VITAMIN SUPPLEMENTATION
     Dosage: 1 DF, QOD
     Dates: start: 2001
  8. VITAMIN B [Concomitant]
     Indication: BREAST FEEDING
  9. KANAVIT [Concomitant]
     Indication: PANCREATIC INSUFFICIENCY
     Dosage: 5 DF, QD
     Dates: start: 2001
  10. SERETIDE [Concomitant]
     Indication: BRONCHIAL HYPERREACTIVITY
     Dosage: (50/100) 2 DF, QD
     Dates: start: 2007
  11. AZITHROMYCIN [Concomitant]
     Indication: ANTIINFLAMMATORY THERAPY
     Dosage: 250 MG, 4X/WEEK
     Dates: start: 2006
  12. BIOPRON KOMPLEX (PROBIOITCS AND PREBIOTICS) [Concomitant]
     Indication: PROBIOTIC THERAPY
     Dosage: 1 DF, QOD
     Dates: start: 2010
  13. BIOPRON KOMPLEX (PROBIOITCS AND PREBIOTICS) [Concomitant]
     Indication: BREAST FEEDING
  14. AMILORID [Concomitant]
     Indication: SECRETION DISCHARGE
     Dosage: 3 ML, BID
     Route: 055
     Dates: start: 2001
  15. PULMOZYME [Concomitant]
     Indication: SECRETION DISCHARGE
     Dosage: 1 AMP, QD
     Dates: start: 2005

REACTIONS (1)
  - Respiration abnormal [Recovered/Resolved]
